FAERS Safety Report 22133065 (Version 2)
Quarter: 2023Q2

REPORT INFORMATION
  Report Type: Report from Study
  Country: US (occurrence: US)
  Receive Date: 20230324
  Receipt Date: 20230616
  Transmission Date: 20230722
  Serious: No
  Sender: FDA-Public Use
  Company Number: US-ACADIA PHARMACEUTICALS INC.-ACA-2023-PIM-000854

PATIENT
  Age: 60 Year
  Sex: Male

DRUGS (22)
  1. NUPLAZID [Suspect]
     Active Substance: PIMAVANSERIN TARTRATE
     Indication: Parkinson^s disease psychosis
     Dosage: 34 MILLIGRAM, QD
     Route: 048
     Dates: start: 20230220, end: 20230519
  2. SINEMET [Concomitant]
     Active Substance: CARBIDOPA\LEVODOPA
     Dosage: 25/100 MG, 5 TIMES DAILY
  3. VENTOLIN HFA [Concomitant]
     Active Substance: ALBUTEROL SULFATE
     Indication: Dyspnoea
     Dosage: 108 (90 BASE) MCG/ACT, INHALE 2 PUFFS EVERY 4 HOURS IF NEEDED
  4. ASPIRIN [Concomitant]
     Active Substance: ASPIRIN
     Dosage: 81 MILLIGRAM, QD
  5. ATORVASTATIN [Concomitant]
     Active Substance: ATORVASTATIN
     Dosage: 40 MILLIGRAM, QD
     Route: 048
  6. AZITHROMYCIN [Concomitant]
     Active Substance: AZITHROMYCIN
     Dosage: 250 MILLIGRAM, QD
     Route: 048
  7. BENZONATATE [Concomitant]
     Active Substance: BENZONATATE
     Dosage: 100 MILLIGRAM, TID
     Route: 048
  8. CITALOPRAM [Concomitant]
     Active Substance: CITALOPRAM HYDROBROMIDE
     Dosage: 20 MILLIGRAM, BID
     Route: 048
  9. GUAIFENESIN AND DEXTROMETHORPHAN [Concomitant]
     Active Substance: DEXTROMETHORPHAN\GUAIFENESIN
     Indication: Cough
     Dosage: TAKE 10 ML BY MOUTH EVERY 30 MINUTES AS NEEDED
  10. DILTIAZEM [Concomitant]
     Active Substance: DILTIAZEM
     Dosage: 240 MILLIGRAM, QD
     Route: 048
  11. FLUTICASONE PROPIONATE [Concomitant]
     Active Substance: FLUTICASONE PROPIONATE
     Dosage: 220 MCG/ACT, INHALE 2 PUFFS TWO TIMES A DAY
     Route: 048
  12. FLUTICASONE FUROATE\UMECLIDINIUM BROMIDE\VILANTEROL TRIFENATATE [Concomitant]
     Active Substance: FLUTICASONE FUROATE\UMECLIDINIUM BROMIDE\VILANTEROL TRIFENATATE
     Dosage: 100-62.5-25 MCG/INH, INHALE 1 PUFF 1 (ONE) TIME EACH DAY
  13. ALBUTEROL\IPRATROPIUM [Concomitant]
     Active Substance: ALBUTEROL\IPRATROPIUM
     Indication: Wheezing
     Dosage: 0.5-2.5 MG/3 ML, TAKE 3 ML BY NEBULIZATION 4 TIMES A DAY IF NEEDED
  14. ALBUTEROL\IPRATROPIUM [Concomitant]
     Active Substance: ALBUTEROL\IPRATROPIUM
     Indication: Dyspnoea
  15. METOPROLOL TARTRATE [Concomitant]
     Active Substance: METOPROLOL TARTRATE
     Dosage: TAKE 0.5 TABLETS (12.5 MG TOTAL) BY MOUTH 2 (TWO) TIMES A DAY
  16. NICOTINE [Concomitant]
     Active Substance: NICOTINE
     Indication: Smoking cessation therapy
     Dosage: 10MG, INHALE I PUFF
  17. POLYETHYLENE GLYCOLS [Concomitant]
     Active Substance: POLYETHYLENE GLYCOLS
     Dosage: 17 GM/SCOOP, TAKE 17 G BY MOUTH 1 (ONE) TIME EACH DAY DISSOLVE EACH 17 G DOSE IN 240 MLS (8 OUNCES)
  18. PREDNISONE [Concomitant]
     Active Substance: PREDNISONE
     Dosage: 10 MILLIGRAM, QD
     Route: 048
  19. DALIRESP [Concomitant]
     Active Substance: ROFLUMILAST
     Dosage: 500 MICROGRAM, QD
     Route: 048
  20. DOCUSATE SODIUM\SENNOSIDE A\SENNOSIDE B [Concomitant]
     Active Substance: DOCUSATE SODIUM\SENNOSIDE A\SENNOSIDE B
     Dosage: 8.6-50 MG, TAKE 2 TABLETS BY MOUTH 1 (ONE) TIME EACH DAY
  21. SODIUM CHLORIDE [Concomitant]
     Active Substance: SODIUM CHLORIDE
     Dosage: 3 %, INHALE 4 ML 4 TIMES DA
  22. VARENICLINE [Concomitant]
     Active Substance: VARENICLINE
     Dosage: 1 MILLIGRAM, BID
     Route: 048

REACTIONS (3)
  - Product dose omission issue [Recovered/Resolved]
  - Abnormal dreams [Not Recovered/Not Resolved]
  - Hallucination [Not Recovered/Not Resolved]

NARRATIVE: CASE EVENT DATE: 20230519
